FAERS Safety Report 11455495 (Version 2)
Quarter: 2015Q3

REPORT INFORMATION
  Report Type: Spontaneous
  Country: CH (occurrence: CH)
  Receive Date: 20150903
  Receipt Date: 20150904
  Transmission Date: 20151125
  Serious: Yes (Other)
  Sender: FDA-Public Use
  Company Number: US-ASTRAZENECA-2015SE84305

PATIENT
  Age: 85 Year
  Sex: Female

DRUGS (10)
  1. EXEMESTHAN [Concomitant]
  2. NAVELBINE [Concomitant]
     Active Substance: VINORELBINE TARTRATE
     Dates: start: 20150825
  3. XELODA [Concomitant]
     Active Substance: CAPECITABINE
     Dates: start: 20150825
  4. ANASTROZOLE. [Concomitant]
     Active Substance: ANASTROZOLE
     Route: 048
  5. FASLODEX [Suspect]
     Active Substance: FULVESTRANT
     Indication: BREAST CANCER METASTATIC
     Route: 030
     Dates: start: 2013
  6. PALBOCICLIB [Concomitant]
     Active Substance: PALBOCICLIB
  7. MORPHIN SUSPENSION [Concomitant]
     Dosage: AS NEEDED
  8. ZOLEDRONIC ACID [Concomitant]
     Active Substance: ZOLEDRONIC ACID
     Route: 065
  9. DUROGESIC [Concomitant]
     Active Substance: FENTANYL
     Dosage: TTS, 50UG/H
  10. TAMOXIFEN ADJUVANT [Concomitant]
     Route: 048

REACTIONS (1)
  - Metastases to bone [Unknown]
